FAERS Safety Report 21987776 (Version 2)
Quarter: 2023Q1

REPORT INFORMATION
  Report Type: Report from Study
  Country: US (occurrence: US)
  Receive Date: 20230214
  Receipt Date: 20230216
  Transmission Date: 20230418
  Serious: Yes (Death, Hospitalization)
  Sender: FDA-Public Use
  Company Number: US-ABBVIE-4306712

PATIENT
  Age: 66 Year
  Sex: Male
  Weight: 67.13 kg

DRUGS (7)
  1. HUMIRA [Suspect]
     Active Substance: ADALIMUMAB
     Indication: Crohn^s disease
     Dosage: CF?DAY 15
     Route: 058
  2. HUMIRA [Suspect]
     Active Substance: ADALIMUMAB
     Route: 058
     Dates: start: 202203
  3. HUMIRA [Suspect]
     Active Substance: ADALIMUMAB
     Dosage: CF?DAY 1
     Route: 058
  4. OMEPRAZOLE [Concomitant]
     Active Substance: OMEPRAZOLE
     Indication: Gastrooesophageal reflux disease
  5. ZOLOFT [Concomitant]
     Active Substance: SERTRALINE HYDROCHLORIDE
     Indication: Depression
  6. AMLODIPINE [Concomitant]
     Active Substance: AMLODIPINE BESYLATE
     Indication: Hypertension
  7. LIPITOR [Concomitant]
     Active Substance: ATORVASTATIN CALCIUM
     Indication: Blood cholesterol increased

REACTIONS (8)
  - Acute respiratory failure [Fatal]
  - Fall [Fatal]
  - Asthenia [Fatal]
  - Subdural haemorrhage [Fatal]
  - Pneumonia legionella [Fatal]
  - Bronchopulmonary aspergillosis [Fatal]
  - Encephalopathy [Fatal]
  - Injury [Fatal]

NARRATIVE: CASE EVENT DATE: 20221201
